FAERS Safety Report 8385688-5 (Version None)
Quarter: 2012Q2

REPORT INFORMATION
  Report Type: 
  Country: None (occurrence: None)
  Receive Date: 20120523
  Receipt Date: 20120523
  Transmission Date: 20120825
  Serious: Yes (Life-Threatening)
  Sender: FDA-Public Use
  Company Number: None

PATIENT
  Age: 85 Year
  Sex: Female
  Weight: 48.4 kg

DRUGS (9)
  1. ZYVOX [Suspect]
     Indication: ABDOMINAL ABSCESS
     Dosage: ZYVOX 600MG BID PO
     Route: 048
     Dates: start: 20120419, end: 20120502
  2. ZYVOX [Suspect]
     Indication: CITROBACTER INFECTION
     Dosage: ZYVOX 600MG BID PO
     Route: 048
     Dates: start: 20120419, end: 20120502
  3. CYCLOSPORINE [Concomitant]
  4. ZOFRAN [Concomitant]
  5. PROCRIT [Concomitant]
  6. SACCHAROMYCES [Concomitant]
  7. LEVAQUIN [Concomitant]
  8. ATENOLOL [Concomitant]
  9. PREDNISONE TAB [Concomitant]

REACTIONS (1)
  - PLATELET COUNT DECREASED [None]
